FAERS Safety Report 20783438 (Version 2)
Quarter: 2022Q2

REPORT INFORMATION
  Report Type: Report from Study
  Country: KR (occurrence: KR)
  Receive Date: 20220504
  Receipt Date: 20220525
  Transmission Date: 20220721
  Serious: Yes (Hospitalization)
  Sender: FDA-Public Use
  Company Number: KR-NOVARTISPH-NVSC2022KR100111

PATIENT
  Age: 69 Year
  Sex: Female
  Weight: 49.7 kg

DRUGS (16)
  1. ALPELISIB [Suspect]
     Active Substance: ALPELISIB
     Indication: Small intestine carcinoma
     Dosage: 300 MG
     Route: 048
     Dates: start: 20211210, end: 20211217
  2. ALPELISIB [Suspect]
     Active Substance: ALPELISIB
     Dosage: 200 MG
     Route: 048
     Dates: start: 20211227
  3. ATIVAN [Concomitant]
     Active Substance: LORAZEPAM
     Indication: Anxiety
     Dosage: 1 MG
     Route: 065
     Dates: start: 20211207, end: 20211217
  4. ATIVAN [Concomitant]
     Active Substance: LORAZEPAM
     Dosage: 1 MG
     Route: 065
     Dates: start: 20211207, end: 20211222
  5. LEXAPRO [Concomitant]
     Active Substance: ESCITALOPRAM OXALATE
     Indication: Anxiety
     Dosage: 10 MG
     Route: 065
     Dates: start: 20211207, end: 20211217
  6. LEXAPRO [Concomitant]
     Active Substance: ESCITALOPRAM OXALATE
     Dosage: 10 MG
     Route: 065
     Dates: start: 20211207, end: 20211222
  7. TRAZODONE HYDROCHLORIDE [Concomitant]
     Active Substance: TRAZODONE HYDROCHLORIDE
     Indication: Anxiety
     Dosage: 50 MG
     Route: 065
     Dates: start: 20211207, end: 20211217
  8. TRAZODONE HYDROCHLORIDE [Concomitant]
     Active Substance: TRAZODONE HYDROCHLORIDE
     Dosage: 50 MG
     Route: 065
     Dates: start: 20211207, end: 20211222
  9. PROPRANOLOL HYDROCHLORIDE [Concomitant]
     Active Substance: PROPRANOLOL HYDROCHLORIDE
     Indication: Hypertension
     Dosage: 10 MG
     Route: 065
     Dates: start: 20211207, end: 20211217
  10. PROPRANOLOL HYDROCHLORIDE [Concomitant]
     Active Substance: PROPRANOLOL HYDROCHLORIDE
     Dosage: 10 MG
     Route: 065
     Dates: start: 20211207, end: 20211222
  11. XANAX [Concomitant]
     Active Substance: ALPRAZOLAM
     Indication: Anxiety
     Dosage: 0.25 MG
     Route: 065
     Dates: start: 20211207, end: 20211217
  12. XANAX [Concomitant]
     Active Substance: ALPRAZOLAM
     Dosage: 0.25 MG
     Route: 065
     Dates: start: 20211207, end: 20211222
  13. LINAGLIPTIN\METFORMIN HYDROCHLORIDE [Concomitant]
     Active Substance: LINAGLIPTIN\METFORMIN HYDROCHLORIDE
     Indication: Hyperglycaemia
     Dosage: 2.5/500 MG
     Route: 065
     Dates: start: 20211217, end: 20211217
  14. LINAGLIPTIN\METFORMIN HYDROCHLORIDE [Concomitant]
     Active Substance: LINAGLIPTIN\METFORMIN HYDROCHLORIDE
     Dosage: 2.5/500 MG
     Route: 065
     Dates: start: 20211217, end: 20211222
  15. TIROPRAMIDE [Concomitant]
     Active Substance: TIROPRAMIDE
     Indication: Dyspepsia
     Dosage: 100 MG
     Route: 065
     Dates: start: 20211218, end: 20211222
  16. GASTER [Concomitant]
     Active Substance: FAMOTIDINE
     Indication: Dyspepsia
     Dosage: 20 MG
     Route: 065
     Dates: start: 20211218, end: 20211222

REACTIONS (2)
  - Urticaria [Recovered/Resolved]
  - Fatigue [Recovered/Resolved]

NARRATIVE: CASE EVENT DATE: 20211218
